FAERS Safety Report 13896490 (Version 1)
Quarter: 2017Q3

REPORT INFORMATION
  Report Type: Spontaneous
  Country: US (occurrence: US)
  Receive Date: 20170821
  Receipt Date: 20170821
  Transmission Date: 20171127
  Serious: Yes (Hospitalization)
  Sender: FDA-Public Use
  Company Number: None

PATIENT
  Age: 55 Year
  Sex: Female
  Weight: 77.8 kg

DRUGS (3)
  1. KEYTRUDA [Suspect]
     Active Substance: PEMBROLIZUMAB
     Indication: NON-SMALL CELL LUNG CANCER METASTATIC
     Route: 041
     Dates: start: 20170717, end: 20170717
  2. CARBOPLATIN. [Concomitant]
     Active Substance: CARBOPLATIN
  3. ALIMTA [Suspect]
     Active Substance: PEMETREXED DISODIUM
     Indication: NON-SMALL CELL LUNG CANCER METASTATIC
     Route: 041
     Dates: start: 20170717, end: 20170717

REACTIONS (6)
  - Dyspnoea [None]
  - Sepsis [None]
  - Acute respiratory failure [None]
  - Pneumonia [None]
  - Chest X-ray abnormal [None]
  - Neutropenia [None]

NARRATIVE: CASE EVENT DATE: 20170718
